FAERS Safety Report 5471932-0 (Version None)
Quarter: 2007Q3

REPORT INFORMATION
  Report Type: 
  Country: None (occurrence: None)
  Receive Date: 20070928
  Receipt Date: 20070918
  Transmission Date: 20080115
  Serious: Yes (Other)
  Sender: FDA-Public Use
  Company Number: JP-PFIZER INC-2007071895

PATIENT
  Sex: Male

DRUGS (4)
  1. XALATAN [Suspect]
     Indication: ANGLE CLOSURE GLAUCOMA
     Route: 031
  2. MIKELAN [Suspect]
     Indication: ANGLE CLOSURE GLAUCOMA
     Route: 031
  3. MIKELAN [Suspect]
     Indication: INTRAOCULAR PRESSURE TEST
  4. AZOPT [Suspect]
     Indication: ANGLE CLOSURE GLAUCOMA
     Route: 031
     Dates: start: 20051107, end: 20070710

REACTIONS (1)
  - HYPOTONIA [None]
